FAERS Safety Report 6724044-X (Version None)
Quarter: 2010Q2

REPORT INFORMATION
  Report Type: 
  Country: None (occurrence: None)
  Receive Date: 20100513
  Receipt Date: 20100510
  Transmission Date: 20101027
  Serious: Yes (Hospitalization)
  Sender: FDA-Public Use
  Company Number: B0645010A

PATIENT
  Sex: Male
  Weight: 62 kg

DRUGS (6)
  1. ZOVIRAX [Suspect]
     Indication: HERPES ZOSTER
     Dosage: 1000MG PER DAY
     Route: 048
     Dates: start: 20100323, end: 20100323
  2. ZOVIRAX [Suspect]
     Dosage: 400MG PER DAY
     Route: 048
     Dates: start: 20100324
  3. ZOVIRAX [Suspect]
     Dosage: 200MG PER DAY
     Route: 048
     Dates: start: 20100328, end: 20100328
  4. ZYLORIC [Concomitant]
     Dosage: 100MG PER DAY
     Route: 048
  5. NORVASC [Concomitant]
     Dosage: 10MG PER DAY
     Route: 048
  6. ADALAT CC [Concomitant]
     Dosage: 20MG PER DAY
     Route: 048

REACTIONS (11)
  - ALTERED STATE OF CONSCIOUSNESS [None]
  - BLOOD CREATININE INCREASED [None]
  - BLOOD POTASSIUM INCREASED [None]
  - BLOOD UREA INCREASED [None]
  - C-REACTIVE PROTEIN INCREASED [None]
  - DISORIENTATION [None]
  - DIZZINESS [None]
  - ENCEPHALOPATHY [None]
  - HAEMATOCRIT DECREASED [None]
  - HAEMOGLOBIN DECREASED [None]
  - RED BLOOD CELL COUNT DECREASED [None]
